FAERS Safety Report 4924264-0 (Version None)
Quarter: 2006Q1

REPORT INFORMATION
  Report Type: 
  Country: None (occurrence: None)
  Receive Date: 20060221
  Receipt Date: 20060207
  Transmission Date: 20060701
  Serious: Yes (Disabling)
  Sender: FDA-Public Use
  Company Number: 2006020098

PATIENT
  Age: 54 Year
  Sex: Female
  Weight: 81.1939 kg

DRUGS (7)
  1. LIPITOR [Suspect]
     Indication: PROPHYLAXIS
     Dosage: 40 MG (40 MG, 1 IN 1 D),
     Dates: start: 20030101
  2. PLAVIX [Concomitant]
  3. ADVAIR DISKUS 100/50 [Concomitant]
  4. ATENOLOL [Concomitant]
  5. ASA (ASCETYLSALICYLIC ACID) [Concomitant]
  6. PEPCID [Concomitant]
  7. AMBIEN [Concomitant]

REACTIONS (6)
  - ANXIETY [None]
  - ARTHRITIS [None]
  - CARPAL TUNNEL SYNDROME [None]
  - DEPRESSION [None]
  - IMPAIRED WORK ABILITY [None]
  - TENDONITIS [None]
